FAERS Safety Report 23797695 (Version 3)
Quarter: 2024Q2

REPORT INFORMATION
  Report Type: Report from Study
  Country: EG (occurrence: EG)
  Receive Date: 20240430
  Receipt Date: 20240610
  Transmission Date: 20240715
  Serious: Yes (Other)
  Sender: FDA-Public Use
  Company Number: EG-BoehringerIngelheim-2024-BI-018752

PATIENT
  Age: 72 Year
  Sex: Male
  Weight: 68 kg

DRUGS (6)
  1. OFEV [Suspect]
     Active Substance: NINTEDANIB
     Indication: Pulmonary fibrosis
     Route: 048
     Dates: start: 20240229
  2. dolycl 1 mg [Concomitant]
     Indication: Diabetes mellitus
     Route: 048
     Dates: start: 2021
  3. NEXIUM [Concomitant]
     Active Substance: ESOMEPRAZOLE MAGNESIUM
     Indication: Gastrooesophageal reflux disease
     Route: 048
     Dates: start: 20240108
  4. azathioperin [Concomitant]
     Indication: Product used for unknown indication
     Route: 048
     Dates: start: 20240229
  5. Berzti inhalher [Concomitant]
     Indication: Pulmonary fibrosis
     Route: 055
     Dates: start: 20240229
  6. DOLIPRANE [Concomitant]
     Active Substance: ACETAMINOPHEN
     Indication: Pyrexia
     Dates: start: 20240323

REACTIONS (11)
  - Decreased appetite [Not Recovered/Not Resolved]
  - Nasopharyngitis [Recovered/Resolved]
  - Headache [Not Recovered/Not Resolved]
  - Musculoskeletal stiffness [Not Recovered/Not Resolved]
  - Fatigue [Unknown]
  - Weight decreased [Not Recovered/Not Resolved]
  - Burning sensation [Not Recovered/Not Resolved]
  - Dry skin [Recovering/Resolving]
  - Nail discolouration [Recovered/Resolved]
  - Skin fissures [Recovering/Resolving]
  - Hepatic enzyme increased [Not Recovered/Not Resolved]

NARRATIVE: CASE EVENT DATE: 20240229
